FAERS Safety Report 10055842 (Version 2)
Quarter: 2014Q2

REPORT INFORMATION
  Report Type: Spontaneous
  Country: BE (occurrence: BE)
  Receive Date: 20140403
  Receipt Date: 20140515
  Transmission Date: 20141212
  Serious: Yes (Hospitalization)
  Sender: FDA-Public Use
  Company Number: BE-JNJFOC-20140313990

PATIENT
  Age: 70 Year
  Sex: Female
  Weight: 51.7 kg

DRUGS (8)
  1. CAELYX [Suspect]
     Indication: OVARIAN CANCER
     Route: 042
     Dates: end: 20140404
  2. CAELYX [Suspect]
     Indication: OVARIAN CANCER
     Route: 042
     Dates: start: 20140303
  3. EC145 [Suspect]
     Indication: OVARIAN CANCER
     Dosage: ON DAY 1, 3, 5, 15, 17 AND 19
     Route: 042
     Dates: end: 20140404
  4. EC145 [Suspect]
     Indication: OVARIAN CANCER
     Dosage: ON DAY 1, 3, 5, 15, 17 AND 19
     Route: 042
     Dates: start: 20140303
  5. FOLIC ACID [Suspect]
     Indication: SINGLE PHOTON EMISSION COMPUTERISED TOMOGRAM
     Route: 042
     Dates: start: 20140218, end: 20140218
  6. FOLIC ACID [Suspect]
     Indication: SINGLE PHOTON EMISSION COMPUTERISED TOMOGRAM
     Route: 042
     Dates: start: 20140212, end: 20140212
  7. EC20 [Suspect]
     Indication: SINGLE PHOTON EMISSION COMPUTERISED TOMOGRAM
     Dosage: ON DAY 1, 3, 5, 15, 17 AND 19
     Route: 042
     Dates: start: 20140218, end: 20140218
  8. EC20 [Suspect]
     Indication: SINGLE PHOTON EMISSION COMPUTERISED TOMOGRAM
     Dosage: ON DAY 1, 3, 5, 15, 17 AND 19
     Route: 042
     Dates: start: 20140212, end: 20140212

REACTIONS (4)
  - Erysipelas [Not Recovered/Not Resolved]
  - Dysphagia [Unknown]
  - Diarrhoea [Not Recovered/Not Resolved]
  - Rectal haemorrhage [Not Recovered/Not Resolved]
